FAERS Safety Report 4922706-8 (Version None)
Quarter: 2006Q1

REPORT INFORMATION
  Report Type: 
  Country: None (occurrence: None)
  Receive Date: 20060221
  Receipt Date: 20060206
  Transmission Date: 20060701
  Serious: Yes (Death)
  Sender: FDA-Public Use
  Company Number: S05-UKI-03483-01

PATIENT
  Age: 29 Year
  Sex: Male

DRUGS (3)
  1. CITALOPRAM HYDROBROMIDE [Suspect]
     Indication: DEPRESSION
     Dosage: 20 MG QD PO
     Route: 048
     Dates: start: 20040101
  2. ZYBAN [Suspect]
     Indication: SMOKING CESSATION THERAPY
     Dosage: 150 MG QD
     Dates: start: 20050421
  3. CHLORPHENIRAMINE MALEATE [Concomitant]

REACTIONS (11)
  - ACUTE PULMONARY OEDEMA [None]
  - CONVULSION [None]
  - DIFFICULTY IN WALKING [None]
  - DRUG INTERACTION [None]
  - HYPERSENSITIVITY [None]
  - LOSS OF CONSCIOUSNESS [None]
  - MALAISE [None]
  - MOVEMENT DISORDER [None]
  - PSYCHOTIC DISORDER [None]
  - PYREXIA [None]
  - TREATMENT NONCOMPLIANCE [None]
